FAERS Safety Report 21732841 (Version 1)
Quarter: 2022Q4

REPORT INFORMATION
  Report Type: Report from Study
  Country: CA (occurrence: CA)
  Receive Date: 20221215
  Receipt Date: 20221215
  Transmission Date: 20230112
  Serious: Yes (Hospitalization, Other)
  Sender: FDA-Public Use
  Company Number: CA-ABBVIE-22K-028-4335593-00

PATIENT
  Age: 68 Year
  Sex: Female

DRUGS (9)
  1. HUMIRA [Suspect]
     Active Substance: ADALIMUMAB
     Indication: Psoriasis
     Dosage: STRENGTH:40MG
     Route: 058
     Dates: start: 20140220, end: 20220325
  2. HUMIRA [Suspect]
     Active Substance: ADALIMUMAB
     Dosage: STRENGTH:40MG
     Route: 058
     Dates: start: 2021, end: 2021
  3. HUMIRA [Suspect]
     Active Substance: ADALIMUMAB
     Dosage: STRENGTH:40MG
     Route: 058
     Dates: start: 2021, end: 2021
  4. HUMIRA [Suspect]
     Active Substance: ADALIMUMAB
     Dosage: STRENGTH:40MG
     Route: 058
     Dates: start: 2021, end: 20220325
  5. HUMIRA [Suspect]
     Active Substance: ADALIMUMAB
     Dosage: STRENGTH:40MG
     Route: 058
     Dates: start: 20220514
  6. COVID-19 VACCINE NOS [Suspect]
     Active Substance: COVID-19 VACCINE NOS
     Indication: COVID-19 immunisation
     Dosage: FIRST DOSE, ONCE
     Route: 030
     Dates: start: 2021, end: 2021
  7. COVID-19 VACCINE NOS [Suspect]
     Active Substance: COVID-19 VACCINE NOS
     Indication: COVID-19 immunisation
     Dosage: SECOND DOSE, ONCE
     Route: 030
     Dates: start: 2021, end: 2021
  8. COVID-19 VACCINE NOS [Suspect]
     Active Substance: COVID-19 VACCINE NOS
     Indication: COVID-19 immunisation
     Dosage: THIRD DOSE, ONCE
     Route: 030
     Dates: start: 2021, end: 2021
  9. COVID-19 VACCINE NOS [Suspect]
     Active Substance: COVID-19 VACCINE NOS
     Indication: COVID-19 immunisation
     Dosage: FOURTH DOSE, ONCE
     Route: 030
     Dates: start: 20220430, end: 20220430

REACTIONS (29)
  - Sinusitis [Unknown]
  - Gastrointestinal pain [Unknown]
  - Weight decreased [Unknown]
  - Immunisation reaction [Unknown]
  - General symptom [Unknown]
  - Illness [Unknown]
  - Hypersomnia [Unknown]
  - Drug intolerance [Unknown]
  - Polyp [Unknown]
  - Gastrooesophageal reflux disease [Unknown]
  - Fibromyalgia [Unknown]
  - Gastrooesophageal reflux disease [Unknown]
  - Psoriasis [Recovering/Resolving]
  - Fungal infection [Unknown]
  - Abdominal pain upper [Unknown]
  - Facial pain [Unknown]
  - Pruritus [Unknown]
  - Gastrointestinal pain [Unknown]
  - Herpes virus infection [Unknown]
  - Pain [Unknown]
  - Abdominal pain upper [Unknown]
  - General symptom [Unknown]
  - Illness [Unknown]
  - Pruritus [Unknown]
  - Fungal infection [Unknown]
  - Hypersomnia [Unknown]
  - Rash [Unknown]
  - Immunisation reaction [Unknown]
  - Psoriasis [Unknown]

NARRATIVE: CASE EVENT DATE: 20220517
